FAERS Safety Report 4910437-X (Version None)
Quarter: 2006Q1

REPORT INFORMATION
  Report Type: 
  Country: None (occurrence: None)
  Receive Date: 20060209
  Receipt Date: 20060125
  Transmission Date: 20060701
  Serious: Yes (Hospitalization)
  Sender: FDA-Public Use
  Company Number: 13309

PATIENT
  Age: 55 Year
  Sex: Male

DRUGS (6)
  1. METHOTREXATE [Suspect]
     Indication: LEUKAEMIA
     Dosage: 1830 MG QD IV
     Route: 042
     Dates: start: 20051011, end: 20051012
  2. CIPRO /00697201/ [Concomitant]
  3. DIFLUCAN [Concomitant]
  4. ACYCLOVIR SODIUM [Concomitant]
  5. ATIVAN [Concomitant]
  6. DECADRON /00016001/ [Concomitant]

REACTIONS (5)
  - HAEMODIALYSIS [None]
  - HYDRONEPHROSIS [None]
  - MUCOSAL INFLAMMATION [None]
  - RENAL FAILURE ACUTE [None]
  - TUMOUR LYSIS SYNDROME [None]
